FAERS Safety Report 6257662-6 (Version None)
Quarter: 2009Q3

REPORT INFORMATION
  Report Type: 
  Country: None (occurrence: None)
  Receive Date: 20090702
  Receipt Date: 20090622
  Transmission Date: 20100115
  Serious: Yes (Hospitalization)
  Sender: FDA-Public Use
  Company Number: 2009AL004053

PATIENT
  Age: 52 Year
  Sex: Female

DRUGS (9)
  1. ALPRAZOLAM [Suspect]
     Dosage: 0.5 MG; QD
  2. LORAZEPAM [Suspect]
     Indication: SLEEP DISORDER
     Dosage: 2.5 MG; HS
  3. FLUOXETINE HCL [Concomitant]
  4. PAROXETINE HCL [Concomitant]
  5. SEROXAT ^CIBA-GEIGY^ [Concomitant]
  6. VENLAFAXINE HYDROCHLORIDE [Concomitant]
  7. TRAZODONE [Concomitant]
  8. SERTRALINE [Concomitant]
  9. RISPERIDONE [Concomitant]

REACTIONS (5)
  - EXERCISE TOLERANCE DECREASED [None]
  - HYPERPROLACTINAEMIA [None]
  - JOINT SWELLING [None]
  - RESPIRATORY DISTRESS [None]
  - RIB FRACTURE [None]
